FAERS Safety Report 15628632 (Version 4)
Quarter: 2022Q1

REPORT INFORMATION
  Report Type: Spontaneous
  Country: ES (occurrence: ES)
  Receive Date: 20181116
  Receipt Date: 20220112
  Transmission Date: 20220423
  Serious: Yes (Other)
  Sender: FDA-Public Use
  Company Number: PHHY2018ES157116

PATIENT
  Age: 63 Year
  Sex: Male

DRUGS (25)
  1. ZOLEDRONIC ACID [Suspect]
     Active Substance: ZOLEDRONIC ACID
     Indication: Metastases to soft tissue
     Dosage: 4 MG, FOR 28 DAYS
     Route: 065
     Dates: start: 201502
  2. ZOLEDRONIC ACID [Suspect]
     Active Substance: ZOLEDRONIC ACID
     Indication: Metastases to bone
  3. ZOLEDRONIC ACID [Suspect]
     Active Substance: ZOLEDRONIC ACID
     Indication: Paraganglion neoplasm malignant
  4. ZOLEDRONIC ACID [Suspect]
     Active Substance: ZOLEDRONIC ACID
     Indication: Paraganglion neoplasm
  5. DACARBAZINE [Suspect]
     Active Substance: DACARBAZINE
     Indication: Metastases to soft tissue
     Dosage: 600 MG/M2, ON DAY AND 2 EVERY 21 DAYS
     Route: 065
  6. DACARBAZINE [Suspect]
     Active Substance: DACARBAZINE
     Indication: Metastases to bone
  7. DACARBAZINE [Suspect]
     Active Substance: DACARBAZINE
     Indication: Paraganglion neoplasm malignant
  8. LANREOTIDE ACETATE [Suspect]
     Active Substance: LANREOTIDE ACETATE
     Indication: Metastases to soft tissue
     Dosage: 120 MG, Q2W (AUTOGEL)
     Route: 065
     Dates: start: 201502, end: 201702
  9. LANREOTIDE ACETATE [Suspect]
     Active Substance: LANREOTIDE ACETATE
     Indication: Metastases to bone
     Dosage: 120 MG, Q2W
     Route: 065
     Dates: start: 201703
  10. LANREOTIDE ACETATE [Suspect]
     Active Substance: LANREOTIDE ACETATE
     Indication: Paraganglion neoplasm malignant
  11. LANREOTIDE ACETATE [Suspect]
     Active Substance: LANREOTIDE ACETATE
     Indication: Paraganglion neoplasm
  12. TEMOZOLOMIDE [Suspect]
     Active Substance: TEMOZOLOMIDE
     Indication: Metastases to bone
     Dosage: 75 MG/M2, QD, WITH A SCHEDULE OF 3 WEEKS ON TREATMENT FOLLOWED BY 1 WEEK OFF TREATMENT
     Route: 065
     Dates: start: 201512, end: 201702
  13. TEMOZOLOMIDE [Suspect]
     Active Substance: TEMOZOLOMIDE
     Indication: Paraganglion neoplasm
     Dosage: 75 MG/M2, QD, WITH A SCHEDULE OF 3 WEEKS ON TREATMENT FOLLOWED BY 1 WEEK OFF TREATMENT
     Route: 065
     Dates: start: 201703
  14. TEMOZOLOMIDE [Suspect]
     Active Substance: TEMOZOLOMIDE
     Indication: Paraganglion neoplasm malignant
  15. TEMOZOLOMIDE [Suspect]
     Active Substance: TEMOZOLOMIDE
     Indication: Metastases to soft tissue
  16. CYCLOPHOSPHAMIDE [Suspect]
     Active Substance: CYCLOPHOSPHAMIDE
     Indication: Paraganglion neoplasm malignant
     Dosage: 750 MG/M2, ON DAY 1, EVERY 21 DAYS
     Route: 065
     Dates: start: 201502, end: 2015
  17. CYCLOPHOSPHAMIDE [Suspect]
     Active Substance: CYCLOPHOSPHAMIDE
     Indication: Metastases to bone
  18. CYCLOPHOSPHAMIDE [Suspect]
     Active Substance: CYCLOPHOSPHAMIDE
     Indication: Metastases to soft tissue
  19. VINCRISTINE [Suspect]
     Active Substance: VINCRISTINE
     Indication: Paraganglion neoplasm malignant
     Dosage: 1.4 MG/M2, Q3W, ON DAY 1
     Route: 065
     Dates: start: 201502, end: 2015
  20. VINCRISTINE [Suspect]
     Active Substance: VINCRISTINE
     Indication: Metastases to bone
  21. VINCRISTINE [Suspect]
     Active Substance: VINCRISTINE
     Indication: Metastases to soft tissue
  22. OLMESARTANUM [Concomitant]
     Indication: Hypertension
     Dosage: 20 MG, UNKNOWN
     Route: 065
  23. OLMESARTANUM [Concomitant]
     Indication: Pain
  24. FENTANYL [Concomitant]
     Active Substance: FENTANYL
     Indication: Hypertension
     Dosage: 200 ?G EVERY 3 DAYS
     Route: 062
  25. FENTANYL [Concomitant]
     Active Substance: FENTANYL
     Indication: Pain

REACTIONS (5)
  - Lymphopenia [Unknown]
  - Condition aggravated [Recovering/Resolving]
  - Metabolic disorder [Unknown]
  - Paraganglion neoplasm malignant [Unknown]
  - Drug ineffective [Unknown]

NARRATIVE: CASE EVENT DATE: 20150101
